FAERS Safety Report 6313726-X (Version None)
Quarter: 2009Q3

REPORT INFORMATION
  Report Type: 
  Country: None (occurrence: None)
  Receive Date: 20090817
  Receipt Date: 20090817
  Transmission Date: 20100115
  Serious: Yes (Hospitalization)
  Sender: FDA-Public Use
  Company Number: None

PATIENT
  Age: 61 Year
  Sex: Male
  Weight: 176.7 kg

DRUGS (2)
  1. DIPHENHYDRAMINE HCL [Suspect]
     Dosage: 25 MG HS PO
     Route: 048
     Dates: start: 20090613
  2. ZOLPIDEM [Suspect]
     Indication: SLEEP DISORDER
     Dosage: 10 MG AT BEDTIME PO
     Route: 048
     Dates: start: 20070725

REACTIONS (3)
  - ATRIOVENTRICULAR BLOCK FIRST DEGREE [None]
  - CHEST PAIN [None]
  - CONFUSIONAL STATE [None]
